FAERS Safety Report 18084405 (Version 4)
Quarter: 2020Q4

REPORT INFORMATION
  Report Type: Spontaneous
  Country: US (occurrence: US)
  Receive Date: 20200729
  Receipt Date: 20201001
  Transmission Date: 20210113
  Serious: Yes (Other)
  Sender: FDA-Public Use
  Company Number: US-HTU-2020US020877

PATIENT
  Age: 85 Year
  Sex: Female

DRUGS (1)
  1. VALCHLOR [Suspect]
     Active Substance: MECHLORETHAMINE
     Indication: CUTANEOUS T-CELL LYMPHOMA
     Dosage: UNK, QD
     Route: 061
     Dates: start: 20140528

REACTIONS (9)
  - Device malfunction [Recovered/Resolved]
  - Fatigue [Unknown]
  - Sleep disorder due to a general medical condition [Unknown]
  - Dyspnoea [Recovering/Resolving]
  - Cough [Unknown]
  - Vein disorder [Not Recovered/Not Resolved]
  - Productive cough [Unknown]
  - Cardiac pacemaker replacement [Unknown]
  - Incision site pain [Unknown]

NARRATIVE: CASE EVENT DATE: 20200921
